FAERS Safety Report 11118824 (Version 1)
Quarter: 2015Q2

REPORT INFORMATION
  Report Type: Spontaneous
  Country: US (occurrence: None)
  Receive Date: 20150515
  Receipt Date: 20150515
  Transmission Date: 20150821
  Serious: No
  Sender: FDA-Public Use
  Company Number: None

PATIENT
  Age: 59 Year
  Sex: Female
  Weight: 65.77 kg

DRUGS (1)
  1. VICTOZA [Suspect]
     Active Substance: LIRAGLUTIDE
     Indication: BLOOD GLUCOSE INCREASED
     Dosage: .6/1.6  ONCE DAILY  INTO THE MUSCLE
     Dates: start: 20150416

REACTIONS (2)
  - Rash pruritic [None]
  - Rash generalised [None]

NARRATIVE: CASE EVENT DATE: 20150416
